FAERS Safety Report 7692480-3 (Version None)
Quarter: 2011Q3

REPORT INFORMATION
  Report Type: 
  Country: None (occurrence: None)
  Receive Date: 20110818
  Receipt Date: 20110805
  Transmission Date: 20111222
  Serious: Yes (Hospitalization)
  Sender: FDA-Public Use
  Company Number: US-CELGENEUS-163-AB007-11081303

PATIENT
  Sex: Female
  Weight: 87 kg

DRUGS (28)
  1. MEGACE [Concomitant]
     Route: 048
     Dates: start: 20110427
  2. CIPROFLOXACIN [Concomitant]
     Indication: PROPHYLAXIS
     Route: 048
     Dates: start: 20110614
  3. BENADRYL [Concomitant]
     Route: 048
     Dates: start: 20110524
  4. CITALOPRAM HYDROBROMIDE [Concomitant]
     Indication: DEPRESSION
     Route: 048
     Dates: start: 20110322
  5. CIPROFLOXACIN [Concomitant]
     Indication: URINARY TRACT INFECTION
     Route: 048
     Dates: start: 20110427
  6. XYLOCAINE [Concomitant]
     Route: 048
     Dates: start: 20110524
  7. VENTOLIN HFA [Concomitant]
  8. LASIX [Concomitant]
     Route: 041
     Dates: start: 20110510, end: 20110510
  9. MYLANTA [Concomitant]
     Route: 048
     Dates: start: 20110524
  10. ONDANSETRON [Concomitant]
     Indication: VOMITING
  11. WHOLE BLOOD [Concomitant]
     Dosage: 2 UNITS
     Route: 041
     Dates: start: 20110510, end: 20110510
  12. MYCELEX [Concomitant]
     Route: 048
     Dates: start: 20110412, end: 20110417
  13. LORAZEPAM [Concomitant]
     Indication: PROPHYLAXIS
     Route: 048
     Dates: start: 20110329
  14. GEMCITABINE [Suspect]
     Dosage: 1000 MILLIGRAM/SQ. METER
     Route: 065
     Dates: start: 20110329
  15. VENTOLIN HFA [Concomitant]
     Indication: BRONCHOSPASM
     Route: 055
     Dates: start: 20110427
  16. ALOXI [Concomitant]
     Indication: PROPHYLAXIS
     Route: 041
     Dates: start: 20110329
  17. ACTIGALL [Concomitant]
     Route: 048
     Dates: start: 19900101
  18. MORPHINE SULFATE [Concomitant]
     Indication: PAIN
     Route: 048
     Dates: start: 20110322
  19. DECADRON [Concomitant]
     Indication: PROPHYLAXIS
     Route: 041
     Dates: start: 20110329
  20. ABRAXANE [Suspect]
     Dosage: 125 MILLIGRAM/SQ. METER
     Route: 065
     Dates: start: 20110329
  21. ABRAXANE [Suspect]
     Dosage: 75 MILLIGRAM/SQ. METER
     Route: 065
     Dates: end: 20110802
  22. GEMCITABINE [Suspect]
     Dosage: 600 MILLIGRAM/SQ. METER
     Route: 065
     Dates: end: 20110802
  23. NEUPOGEN [Concomitant]
     Indication: FEBRILE NEUTROPENIA
     Route: 058
     Dates: start: 20110510, end: 20110510
  24. VITAMIN D [Concomitant]
     Route: 048
     Dates: start: 20110101
  25. WHOLE BLOOD [Concomitant]
     Route: 041
     Dates: start: 20110531, end: 20110531
  26. MYCELEX [Concomitant]
     Route: 048
     Dates: start: 20110524
  27. ENOXAPARIN SODIUM [Concomitant]
     Indication: ANTICOAGULANT THERAPY
     Route: 058
     Dates: start: 20110323
  28. ONDANSETRON [Concomitant]
     Indication: NAUSEA
     Route: 048
     Dates: start: 20110329

REACTIONS (1)
  - SYNCOPE [None]
